FAERS Safety Report 8787438 (Version 1)
Quarter: 2012Q4

REPORT INFORMATION
  Report Type: Report from Study
  Country: US (occurrence: US)
  Receive Date: 20120914
  Receipt Date: 20120914
  Transmission Date: 20130627
  Serious: No
  Sender: FDA-Public Use
  Company Number: US-VERTEX PHARMACEUTICAL INC.-AE-2012-010749

PATIENT
  Sex: Male
  Weight: 86.2 kg

DRUGS (9)
  1. INCIVEK [Suspect]
     Indication: HEPATITIS C
     Route: 048
     Dates: start: 20120709
  2. RIBAPAK [Concomitant]
     Indication: HEPATITIS C
     Route: 048
     Dates: start: 20120709
  3. PEGASYS PROCLICK [Concomitant]
     Indication: HEPATITIS C
     Route: 058
     Dates: start: 20120709
  4. LACTULOSE [Concomitant]
     Route: 048
  5. NADOLOL [Concomitant]
     Route: 048
  6. LOVAZA [Concomitant]
     Route: 048
  7. ASPIRIN [Concomitant]
     Route: 048
  8. OMEPRAZOLE DR [Concomitant]
     Route: 048
  9. ACTOPLUS MET [Concomitant]
     Route: 048

REACTIONS (1)
  - Fatigue [Unknown]
